FAERS Safety Report 22784489 (Version 3)
Quarter: 2023Q4

REPORT INFORMATION
  Report Type: Spontaneous
  Country: US (occurrence: US)
  Receive Date: 20230803
  Receipt Date: 20231009
  Transmission Date: 20240110
  Serious: No
  Sender: FDA-Public Use
  Company Number: US-drreddys-SPO/USA/23/0166645

PATIENT
  Age: 16 Year
  Sex: Male
  Weight: 97.61 kg

DRUGS (15)
  1. SAPROPTERIN DIHYDROCHLORIDE [Suspect]
     Active Substance: SAPROPTERIN DIHYDROCHLORIDE
     Indication: Phenylketonuria
     Dosage: DISSOLVE 4 PACKETS OF 500 MG (2000 MG) IN 4 TO 8 OUNCES OF WATER OR JUICE BY MOUTH DAILY AND ONE 100
     Route: 048
  2. SAPROPTERIN DIHYDROCHLORIDE [Suspect]
     Active Substance: SAPROPTERIN DIHYDROCHLORIDE
     Indication: Phenylketonuria
     Dosage: DISSOLVE 4 PACKETS OF 500 MG (2000 MG) IN 4 TO 8 OUNCES OF WATER OR JUICE BY MOUTH DAILY AND ONE 100
     Route: 048
  3. DOANS EXTRA STRENGTH [Suspect]
     Active Substance: MAGNESIUM SALICYLATE
     Indication: Product used for unknown indication
     Dosage: 100 MG WITH 4 PACKETS OF 500 MG (2000 MG) BY MOUTH DAILY (TOTAL 2100 MG)
  4. LEVOCARNITINE 1 G/10 ML SOLN [Concomitant]
     Indication: Product used for unknown indication
     Dosage: 1G/10 ML SOLUTION
  5. VITAMINS [Concomitant]
     Active Substance: VITAMINS
     Indication: Product used for unknown indication
  6. LANSOPRAZOLE [Concomitant]
     Active Substance: LANSOPRAZOLE
     Indication: Product used for unknown indication
  7. OMEGA 3 [Concomitant]
     Active Substance: CAPSAICIN
     Indication: Product used for unknown indication
     Dosage: 500 TO 1000 MG
  8. EPINEPHRINE [Concomitant]
     Active Substance: EPINEPHRINE
     Indication: Product used for unknown indication
     Dosage: 0.3 MG/0.3 AUTO INJC
  9. CREATINE [Concomitant]
     Active Substance: CREATINE
     Indication: Product used for unknown indication
     Dosage: POWDER
  10. Phenylade 60 [Concomitant]
     Indication: Product used for unknown indication
     Dosage: 10G TO 40 POWDER PACK
  11. ZYRTEC [Concomitant]
     Active Substance: CETIRIZINE HYDROCHLORIDE
     Indication: Product used for unknown indication
  12. CREON [Concomitant]
     Active Substance: PANCRELIPASE AMYLASE\PANCRELIPASE LIPASE\PANCRELIPASE PROTEASE
     Indication: Product used for unknown indication
     Dosage: 12K-38K-60 DR
  13. Hizentra 4Gm 20ml vial [Concomitant]
     Indication: Product used for unknown indication
     Dosage: 4 GM 20MG VIAL
  14. Moxatag 775mg TBMP 24Hr [Concomitant]
     Indication: Product used for unknown indication
     Dosage: TBMP 24 HR
  15. Co-enzyme Q-10 [Concomitant]
     Indication: Product used for unknown indication
     Dosage: 100MG-5

REACTIONS (2)
  - Gastrointestinal viral infection [Unknown]
  - Adverse drug reaction [Unknown]
